FAERS Safety Report 8950437 (Version 1)
Quarter: 2012Q4

REPORT INFORMATION
  Report Type: 
  Country: US (occurrence: US)
  Receive Date: 20121207
  Receipt Date: 20121207
  Transmission Date: 20130627
  Serious: No
  Sender: FDA-Public Use
  Company Number: US-PFIZER INC-2012306682

PATIENT
  Age: 61 Year
  Sex: Female
  Weight: 98.41 kg

DRUGS (3)
  1. LYRICA [Suspect]
     Dosage: UNK
  2. PLAQUENIL [Suspect]
     Dosage: UNK
  3. TRAZODONE [Suspect]
     Dosage: UNK

REACTIONS (1)
  - Drug hypersensitivity [Unknown]
